FAERS Safety Report 13393467 (Version 1)
Quarter: 2017Q1

REPORT INFORMATION
  Report Type: Spontaneous
  Country: US (occurrence: US)
  Receive Date: 20170331
  Receipt Date: 20170331
  Transmission Date: 20170429
  Serious: Yes (Other)
  Sender: FDA-Public Use
  Company Number: US-BAYER-2017-059377

PATIENT
  Age: 16 Year
  Sex: Male
  Weight: 66.6 kg

DRUGS (3)
  1. KOGENATE FS [Suspect]
     Active Substance: ANTIHEMOPHILIC FACTOR, HUMAN RECOMBINANT
     Indication: FACTOR VIII DEFICIENCY
     Dosage: 1500 IU, TWICE WEEKLY
     Route: 042
     Dates: start: 201610
  2. KOGENATE FS [Suspect]
     Active Substance: ANTIHEMOPHILIC FACTOR, HUMAN RECOMBINANT
     Indication: FACTOR VIII DEFICIENCY
     Dosage: RECEIVED 3 DOSES FOR TREATMENT
     Route: 042
     Dates: start: 201703, end: 201703
  3. KOGENATE FS [Suspect]
     Active Substance: ANTIHEMOPHILIC FACTOR, HUMAN RECOMBINANT
     Indication: SPONTANEOUS HAEMORRHAGE
     Dosage: 3000 IU, ONCE WEEKLY
     Route: 042
     Dates: start: 201610

REACTIONS (1)
  - Haemorrhage [None]

NARRATIVE: CASE EVENT DATE: 201703
